FAERS Safety Report 7033314-X (Version None)
Quarter: 2010Q4

REPORT INFORMATION
  Report Type: 
  Country: None (occurrence: None)
  Receive Date: 20101007
  Receipt Date: 20101001
  Transmission Date: 20110411
  Serious: Yes (Other)
  Sender: FDA-Public Use
  Company Number: B0678023A

PATIENT
  Age: 33 Year
  Sex: Female

DRUGS (3)
  1. LAMOTRIGINE [Suspect]
     Indication: BIPOLAR DISORDER
     Dosage: 50MG PER DAY
     Route: 048
  2. FLUOXETINE HCL [Concomitant]
     Dosage: 20MG PER DAY
  3. EUTIROX [Concomitant]
     Dosage: 50MG PER DAY

REACTIONS (13)
  - ASTHENIA [None]
  - BLISTER [None]
  - CONJUNCTIVITIS INFECTIVE [None]
  - EYE PRURITUS [None]
  - LYMPHADENOPATHY [None]
  - MUSCULOSKELETAL PAIN [None]
  - NORMOCHROMIC NORMOCYTIC ANAEMIA [None]
  - ODYNOPHAGIA [None]
  - SKIN EXFOLIATION [None]
  - SKIN LESION [None]
  - STEVENS-JOHNSON SYNDROME [None]
  - THROMBOCYTOSIS [None]
  - VULVOVAGINAL PRURITUS [None]
